FAERS Safety Report 8660085 (Version 3)
Quarter: 2015Q1

REPORT INFORMATION
  Report Type: Spontaneous
  Country: US (occurrence: US)
  Receive Date: 20120711
  Receipt Date: 20150313
  Transmission Date: 20150721
  Serious: Yes (Hospitalization)
  Sender: FDA-Public Use
  Company Number: US-ASTRAZENECA-2012SE43678

PATIENT
  Age: 48 Year
  Sex: Female

DRUGS (33)
  1. SEROQUEL XR [Suspect]
     Active Substance: QUETIAPINE FUMARATE
     Indication: BIPOLAR I DISORDER
     Route: 048
     Dates: end: 2012
  2. SEROQUEL XR [Suspect]
     Active Substance: QUETIAPINE FUMARATE
     Indication: SCHIZOPHRENIA, PARANOID TYPE
     Route: 048
     Dates: end: 2012
  3. ALOE V SUPPLEMENT [Concomitant]
     Indication: CONSTIPATION
  4. ROBINOL [Concomitant]
  5. CLOZARIL [Concomitant]
     Active Substance: CLOZAPINE
     Indication: PSYCHOTIC DISORDER
     Dates: start: 201501
  6. DEPAKOTE ER [Concomitant]
     Active Substance: DIVALPROEX SODIUM
     Indication: AFFECTIVE DISORDER
     Dates: start: 201501
  7. VITAMIN D3 [Concomitant]
     Active Substance: CHOLECALCIFEROL
     Indication: CONSTIPATION
  8. SEROQUEL XR [Suspect]
     Active Substance: QUETIAPINE FUMARATE
     Indication: PSYCHOTIC DISORDER
     Route: 048
     Dates: end: 2012
  9. SEROQUEL XR [Suspect]
     Active Substance: QUETIAPINE FUMARATE
     Indication: BIPOLAR I DISORDER
     Dosage: SEROQUEL XR 400 MG AND ALSO SEROQUEL XR 300 MG OFF AND ON
     Route: 048
     Dates: start: 201211, end: 201408
  10. SEROQUEL XR [Suspect]
     Active Substance: QUETIAPINE FUMARATE
     Indication: SCHIZOAFFECTIVE DISORDER
     Dosage: SEROQUEL XR 400 MG AND ALSO SEROQUEL XR 300 MG OFF AND ON
     Route: 048
     Dates: start: 201211, end: 201408
  11. SEROQUEL XR [Suspect]
     Active Substance: QUETIAPINE FUMARATE
     Indication: SCHIZOPHRENIA, PARANOID TYPE
     Dosage: TAKING SEROQUEL IR 200 MG IN THE MORNING AND SEROQUEL IR 300 MG IN THE EVENING
     Route: 048
     Dates: start: 201501
  12. LISINOPRIL-HCTZ [Suspect]
     Active Substance: HYDROCHLOROTHIAZIDE\LISINOPRIL
     Dosage: 10-12.5 MG
     Route: 048
  13. SEROQUEL XR [Suspect]
     Active Substance: QUETIAPINE FUMARATE
     Indication: BIPOLAR I DISORDER
     Route: 048
     Dates: start: 2012
  14. GENERIC PRILOSEC [Suspect]
     Active Substance: OMEPRAZOLE MAGNESIUM
  15. ATIVAN [Concomitant]
     Active Substance: LORAZEPAM
     Indication: PSYCHOTIC DISORDER
     Dates: start: 201501
  16. TRAZODONE [Concomitant]
     Active Substance: TRAZODONE HYDROCHLORIDE
     Indication: SLEEP DISORDER
  17. SEROQUEL XR [Suspect]
     Active Substance: QUETIAPINE FUMARATE
     Indication: SCHIZOAFFECTIVE DISORDER
     Route: 048
     Dates: end: 2012
  18. SEROQUEL XR [Suspect]
     Active Substance: QUETIAPINE FUMARATE
     Indication: SCHIZOPHRENIA, PARANOID TYPE
     Dosage: SEROQUEL XR 400 MG AND ALSO SEROQUEL XR 300 MG OFF AND ON
     Route: 048
     Dates: start: 201211, end: 201408
  19. SEROQUEL XR [Suspect]
     Active Substance: QUETIAPINE FUMARATE
     Indication: SCHIZOAFFECTIVE DISORDER
     Dosage: TAKING SEROQUEL IR 200 MG IN THE MORNING AND SEROQUEL IR 300 MG IN THE EVENING
     Route: 048
     Dates: start: 201501
  20. SOMETHING FOR BLOOD PRESSURE [Concomitant]
     Indication: BLOOD PRESSURE ABNORMAL
     Dates: start: 2011
  21. KLONOPIN GENERIC [Concomitant]
  22. SEROQUEL XR [Suspect]
     Active Substance: QUETIAPINE FUMARATE
     Indication: PSYCHOTIC DISORDER
     Dosage: SEROQUEL XR 400 MG AND ALSO SEROQUEL XR 300 MG OFF AND ON
     Route: 048
     Dates: start: 201211, end: 201408
  23. TRAZODONE [Concomitant]
     Active Substance: TRAZODONE HYDROCHLORIDE
     Indication: DEPRESSION
  24. TRILEPTAL GENERIC [Concomitant]
     Active Substance: OXCARBAZEPINE
     Dosage: 150 MG AND 300 MG DAILY
  25. LORATADINE. [Concomitant]
     Active Substance: LORATADINE
     Dosage: AS NEEDED
  26. SEROQUEL XR [Suspect]
     Active Substance: QUETIAPINE FUMARATE
     Indication: PSYCHOTIC DISORDER
     Route: 048
     Dates: start: 2012
  27. SEROQUEL XR [Suspect]
     Active Substance: QUETIAPINE FUMARATE
     Indication: SCHIZOPHRENIA, PARANOID TYPE
     Route: 048
     Dates: start: 2012
  28. SEROQUEL XR [Suspect]
     Active Substance: QUETIAPINE FUMARATE
     Indication: SCHIZOAFFECTIVE DISORDER
     Route: 048
     Dates: start: 2012
  29. PROGREST [Concomitant]
     Indication: MENSTRUAL DISORDER
     Dosage: ONE QUARTER TEASPOON ONCE A MONTH
  30. IBUPROFEN. [Concomitant]
     Active Substance: IBUPROFEN
     Dosage: AS NEEDED
  31. SEROQUEL XR [Suspect]
     Active Substance: QUETIAPINE FUMARATE
     Indication: PSYCHOTIC DISORDER
     Dosage: TAKING SEROQUEL IR 200 MG IN THE MORNING AND SEROQUEL IR 300 MG IN THE EVENING
     Route: 048
     Dates: start: 201501
  32. SEROQUEL XR [Suspect]
     Active Substance: QUETIAPINE FUMARATE
     Indication: BIPOLAR I DISORDER
     Dosage: TAKING SEROQUEL IR 200 MG IN THE MORNING AND SEROQUEL IR 300 MG IN THE EVENING
     Route: 048
     Dates: start: 201501
  33. LAMICTAL GENERIC [Concomitant]
     Active Substance: LAMOTRIGINE

REACTIONS (9)
  - Drug effect increased [Unknown]
  - Malaise [Unknown]
  - Nausea [Unknown]
  - Aggression [Unknown]
  - Dyspepsia [Unknown]
  - Product use issue [Unknown]
  - Intentional product misuse [Recovered/Resolved]
  - Drug dose omission [Unknown]
  - Drug ineffective [Unknown]

NARRATIVE: CASE EVENT DATE: 201211
